FAERS Safety Report 6483749-9 (Version None)
Quarter: 2009Q4

REPORT INFORMATION
  Report Type: 
  Country: None (occurrence: None)
  Receive Date: 20091209
  Receipt Date: 20091204
  Transmission Date: 20100525
  Serious: Yes (Hospitalization)
  Sender: FDA-Public Use
  Company Number: TW-BRISTOL-MYERS SQUIBB COMPANY-14871693

PATIENT
  Age: 57 Year
  Sex: Male
  Weight: 79 kg

DRUGS (3)
  1. CETUXIMAB [Suspect]
     Indication: PHARYNGEAL CANCER STAGE UNSPECIFIED
     Dosage: RECENT INF: 06NOV09
     Route: 042
     Dates: start: 20091023
  2. CISPLATIN [Suspect]
     Indication: PHARYNGEAL CANCER STAGE UNSPECIFIED
     Dosage: RECENT INF: 06NOV09
     Route: 042
     Dates: start: 20091023
  3. PACLITAXEL [Suspect]
     Indication: PHARYNGEAL CANCER STAGE UNSPECIFIED
     Dosage: RECENT INF: 06NOV09
     Route: 042
     Dates: start: 20091023

REACTIONS (2)
  - TUMOUR NECROSIS [None]
  - WOUND INFECTION [None]
